FAERS Safety Report 24301755 (Version 1)
Quarter: 2024Q3

REPORT INFORMATION
  Report Type: Spontaneous
  Country: CA (occurrence: None)
  Receive Date: 20240910
  Receipt Date: 20240910
  Transmission Date: 20241016
  Serious: Yes (Other)
  Sender: ORION
  Company Number: CA-PFIZER INC-202400251395

PATIENT
  Age: 14 Year
  Sex: Male

DRUGS (3)
  1. METHOTREXATE [Suspect]
     Active Substance: METHOTREXATE
     Indication: Crohn^s disease
     Dates: start: 2015, end: 2020
  2. IMURAN [Concomitant]
     Active Substance: AZATHIOPRINE
     Dates: start: 2014
  3. REMICADE [Concomitant]
     Active Substance: INFLIXIMAB
     Dates: start: 2015

REACTIONS (3)
  - Bicytopenia [Unknown]
  - Product use in unapproved indication [Unknown]
  - Crohn^s disease [Unknown]

NARRATIVE: CASE EVENT DATE: 20150101
